FAERS Safety Report 20093756 (Version 1)
Quarter: 2021Q4

REPORT INFORMATION
  Report Type: Spontaneous
  Country: US (occurrence: None)
  Receive Date: 20211119
  Receipt Date: 20211119
  Transmission Date: 20220303
  Serious: No
  Sender: FDA-Public Use
  Company Number: None

PATIENT
  Age: 30 Year
  Sex: Male
  Weight: 90 kg

DRUGS (1)
  1. DAPTOMYCIN [Suspect]
     Active Substance: DAPTOMYCIN
     Indication: Staphylococcal sepsis
     Dates: start: 20210420, end: 20210513

REACTIONS (4)
  - Transaminases increased [None]
  - Liver injury [None]
  - Hepatomegaly [None]
  - Hepatic steatosis [None]

NARRATIVE: CASE EVENT DATE: 20210429
